FAERS Safety Report 11821485 (Version 1)
Quarter: 2015Q4

REPORT INFORMATION
  Report Type: Report from Study
  Country: CA (occurrence: CA)
  Receive Date: 20151210
  Receipt Date: 20151210
  Transmission Date: 20160305
  Serious: Yes (Other)
  Sender: FDA-Public Use
  Company Number: CA-BEH-2015056757

PATIENT
  Age: 30 Year
  Sex: Female
  Weight: 68 kg

DRUGS (3)
  1. BERINERT [Suspect]
     Active Substance: HUMAN C1-ESTERASE INHIBITOR
     Indication: SWELLING FACE
     Dosage: START DATE: 11 YEARS AGO
     Route: 042
  2. BERINERT [Suspect]
     Active Substance: HUMAN C1-ESTERASE INHIBITOR
     Indication: PHARYNGEAL OEDEMA
     Dosage: START DATE: 11 YEARS AGO
     Route: 042
  3. BERINERT [Suspect]
     Active Substance: HUMAN C1-ESTERASE INHIBITOR
     Indication: SWELLING FACE
     Dosage: START DATE: 11 YEARS AGO
     Route: 042

REACTIONS (3)
  - Swelling face [Unknown]
  - Pharyngeal oedema [Unknown]
  - Fall [Unknown]

NARRATIVE: CASE EVENT DATE: 20151031
